FAERS Safety Report 6783397-7 (Version None)
Quarter: 2010Q2

REPORT INFORMATION
  Report Type: 
  Country: None (occurrence: None)
  Receive Date: 20100622
  Receipt Date: 20100609
  Transmission Date: 20101027
  Serious: Yes (Hospitalization)
  Sender: FDA-Public Use
  Company Number: PHHY2009AU49145

PATIENT
  Sex: Male

DRUGS (2)
  1. CLOZARIL [Suspect]
     Dosage: 500 MG, QD
     Dates: start: 19980909
  2. CLOZARIL [Suspect]
     Dosage: 50 MG, QD
     Dates: start: 20100608

REACTIONS (2)
  - MENTAL DISORDER [None]
  - TREATMENT NONCOMPLIANCE [None]
